FAERS Safety Report 18655963 (Version 2)
Quarter: 2021Q1

REPORT INFORMATION
  Report Type: Spontaneous
  Country: DK (occurrence: DK)
  Receive Date: 20201223
  Receipt Date: 20210105
  Transmission Date: 20210419
  Serious: Yes (Death, Hospitalization, Other)
  Sender: FDA-Public Use
  Company Number: NVSC2020DK340146

PATIENT
  Age: 70 Year
  Sex: Male
  Weight: 87.3 kg

DRUGS (4)
  1. PREDNISOLONE. [Suspect]
     Active Substance: PREDNISOLONE
     Indication: PNEUMONITIS
     Dosage: 100 MG
     Route: 048
     Dates: start: 201711
  2. OPDIVO [Suspect]
     Active Substance: NIVOLUMAB
     Indication: LUNG NEOPLASM MALIGNANT
     Dosage: 260 MG, BIW (260 MG, APPROXIMATELY)
     Route: 042
     Dates: start: 20170719, end: 20171124
  3. OPDIVO [Suspect]
     Active Substance: NIVOLUMAB
     Indication: LUNG ADENOCARCINOMA
     Dosage: 2 MG/KG, UNK
     Route: 042
     Dates: start: 201611, end: 201712
  4. OPDIVO [Suspect]
     Active Substance: NIVOLUMAB
     Dosage: 276 MG, TIW (STRENGTH: 3 MG/KG)
     Route: 042
     Dates: start: 20170719, end: 20171211

REACTIONS (8)
  - Interstitial lung disease [Fatal]
  - Pneumocystis jirovecii pneumonia [Fatal]
  - Pneumonitis [Unknown]
  - Respiratory failure [Fatal]
  - Hepatitis [Unknown]
  - Metastases to lung [Unknown]
  - Pelvic inflammatory disease [Unknown]
  - Sepsis [Fatal]

NARRATIVE: CASE EVENT DATE: 20171116
